FAERS Safety Report 7082261-6 (Version None)
Quarter: 2010Q4

REPORT INFORMATION
  Report Type: 
  Country: None (occurrence: None)
  Receive Date: 20101104
  Receipt Date: 20101027
  Transmission Date: 20110411
  Serious: Yes (Hospitalization)
  Sender: FDA-Public Use
  Company Number: IT-BIOGENIDEC-2010BI032655

PATIENT
  Age: 23 Year
  Sex: Female

DRUGS (12)
  1. TYSABRI [Suspect]
     Indication: RELAPSING-REMITTING MULTIPLE SCLEROSIS
     Route: 042
     Dates: start: 20090202
  2. TYSABRI [Suspect]
     Route: 042
     Dates: start: 20090302
  3. TYSABRI [Suspect]
     Route: 042
     Dates: start: 20090330
  4. TYSABRI [Suspect]
     Route: 042
     Dates: start: 20090428
  5. TYSABRI [Suspect]
     Route: 042
     Dates: start: 20090528
  6. TYSABRI [Suspect]
     Route: 042
     Dates: start: 20090626
  7. TYSABRI [Suspect]
     Route: 042
     Dates: start: 20090728
  8. TYSABRI [Suspect]
     Route: 042
     Dates: start: 20090831
  9. TYSABRI [Suspect]
     Route: 042
     Dates: start: 20090929
  10. TYSABRI [Suspect]
     Route: 042
     Dates: start: 20091111
  11. TYSABRI [Suspect]
     Route: 042
     Dates: start: 20091210
  12. TYSABRI [Suspect]
     Route: 042
     Dates: start: 20100115

REACTIONS (3)
  - MULTIPLE SCLEROSIS RELAPSE [None]
  - THYROID CANCER [None]
  - URINARY RETENTION [None]
